FAERS Safety Report 7915850-4 (Version None)
Quarter: 2011Q4

REPORT INFORMATION
  Report Type: 
  Country: None (occurrence: None)
  Receive Date: 20111115
  Receipt Date: 20111108
  Transmission Date: 20120403
  Serious: Yes (Disabling, Other)
  Sender: FDA-Public Use
  Company Number: DE-PFIZER INC-9820515

PATIENT
  Age: 58 Year
  Sex: Male
  Weight: 66 kg

DRUGS (6)
  1. ZITHROMAX [Interacting]
     Indication: CORONARY ARTERY DISEASE
     Dosage: 500 MG DAILY
     Route: 048
     Dates: start: 19980311, end: 19980313
  2. METFORMIN HCL [Concomitant]
     Route: 048
  3. ZITHROMAX [Suspect]
     Indication: CHLAMYDIAL INFECTION
     Dosage: 500 MG DAILY
     Route: 048
     Dates: start: 19980224, end: 19980226
  4. CERIVASTATIN [Interacting]
     Indication: HYPERLIPIDAEMIA
     Dosage: 0.3 MG DAILY
     Route: 048
     Dates: start: 19980220, end: 19980321
  5. VERAPAMIL HCL [Concomitant]
     Dates: start: 19980223, end: 19980320
  6. ACETYLSALICYLIC ACID SRT [Concomitant]
     Route: 048

REACTIONS (7)
  - TACHYCARDIA [None]
  - UNEVALUABLE EVENT [None]
  - MUSCULAR WEAKNESS [None]
  - MYOGLOBIN BLOOD INCREASED [None]
  - SLEEP DISORDER [None]
  - MYALGIA [None]
  - DRUG INTERACTION [None]
